FAERS Safety Report 19016748 (Version 1)
Quarter: 2021Q1

REPORT INFORMATION
  Report Type: Other
  Country: US (occurrence: US)
  Receive Date: 20210317
  Receipt Date: 20210317
  Transmission Date: 20210420
  Serious: Yes (Other)
  Sender: FDA-Public Use
  Company Number: US-ROCHE-2783866

PATIENT
  Sex: Female
  Weight: 74.91 kg

DRUGS (5)
  1. OCREVUS [Suspect]
     Active Substance: OCRELIZUMAB
     Indication: RELAPSING MULTIPLE SCLEROSIS
     Dosage: DISPENSE 2 VIAL?300 MG/10 ML PER PI INFUSION 600 MG EVERY 6 MONTHS?MOST RECENT DOSE ON 13/OCT/2020
     Route: 042
     Dates: start: 20190410
  2. ALBUTEROL. [Concomitant]
     Active Substance: ALBUTEROL
     Dosage: 1  INHALER PRN
     Route: 045
  3. CLARITIN [Concomitant]
     Active Substance: LORATADINE
     Route: 048
  4. TYLENOL [Concomitant]
     Active Substance: ACETAMINOPHEN
     Dosage: 2 TABLETS
     Route: 048
  5. OCREVUS [Suspect]
     Active Substance: OCRELIZUMAB
     Route: 042
     Dates: start: 20200408

REACTIONS (4)
  - Cough [Recovering/Resolving]
  - Asthma [Recovering/Resolving]
  - Cholelithiasis [Unknown]
  - Throat irritation [Recovering/Resolving]
